FAERS Safety Report 10419871 (Version 1)
Quarter: 2014Q2

REPORT INFORMATION
  Report Type: Spontaneous
  Country: US (occurrence: None)
  Receive Date: 20140627
  Receipt Date: 20140627
  Transmission Date: 20141212
  Serious: Yes (Other)
  Sender: FDA-Public Use
  Company Number: PHEH2014US004596

PATIENT
  Age: 67 Year
  Sex: Female

DRUGS (9)
  1. HYDROCHLOROTHIAZIDE, VALSARTAN (VALSARTAN, HYDROCHLOROTHIAZIDE) UNKNOWN [Suspect]
     Dosage: UNK UKN, UNK
  2. BABY ASPIRIN (ACETYLSALICYLIC ACID) [Concomitant]
  3. ALLOPURINOL [Concomitant]
  4. LEVOTHYROXINE [Concomitant]
  5. RELION HUMULIN R (INSULIN HUMAN) [Concomitant]
  6. RELION/NOVOLIN N (INSULIN HUMAN INJECTION, ISOPHANE) [Concomitant]
  7. VITAMIN D3 (COLECALCIFEROL) [Concomitant]
  8. MAGNESIUM OXIDE [Concomitant]
  9. FISH OIL [Concomitant]

REACTIONS (2)
  - Blood pressure increased [None]
  - Heart rate irregular [None]
